FAERS Safety Report 12667260 (Version 1)
Quarter: 2016Q3

REPORT INFORMATION
  Report Type: Spontaneous
  Country: US (occurrence: None)
  Receive Date: 20160818
  Receipt Date: 20160818
  Transmission Date: 20161109
  Serious: Yes (Hospitalization)
  Sender: FDA-Public Use
  Company Number: None

PATIENT
  Age: 74 Year
  Sex: Female
  Weight: 64.41 kg

DRUGS (2)
  1. PREVNAR [Suspect]
     Active Substance: PNEUMOCOCCAL 7-VALENT CONJUGATE VACCINE (DIPHTHERIA CRM197 PROTEIN)
  2. LEVAQUIN [Suspect]
     Active Substance: LEVOFLOXACIN
     Indication: PNEUMONIA
     Route: 048
     Dates: start: 20141218, end: 20141228

REACTIONS (27)
  - Arthralgia [None]
  - Arthritis [None]
  - Diplopia [None]
  - Fatigue [None]
  - Pyrexia [None]
  - Stomatitis [None]
  - Bone pain [None]
  - Pain in extremity [None]
  - Insomnia [None]
  - Sensory disturbance [None]
  - Pain [None]
  - Headache [None]
  - Throat irritation [None]
  - Ear discomfort [None]
  - Tinnitus [None]
  - Malaise [None]
  - Eye pain [None]
  - Crying [None]
  - Activities of daily living impaired [None]
  - Neck pain [None]
  - Fear [None]
  - Therapy non-responder [None]
  - Skin lesion [None]
  - Tremor [None]
  - Myalgia [None]
  - Visual impairment [None]
  - Weight increased [None]
